FAERS Safety Report 8381957-3 (Version None)
Quarter: 2012Q2

REPORT INFORMATION
  Report Type: 
  Country: None (occurrence: None)
  Receive Date: 20120509
  Receipt Date: 20120423
  Transmission Date: 20120825
  Serious: Yes (Other)
  Sender: FDA-Public Use
  Company Number: 2012031990

PATIENT
  Sex: Male

DRUGS (8)
  1. CLARITIN [Concomitant]
  2. LEVOTHYROXINE SODIUM [Concomitant]
  3. NASONEX [Concomitant]
  4. VENTOLIN [Concomitant]
  5. HIZENTRA [Suspect]
     Indication: IMMUNODEFICIENCY COMMON VARIABLE
     Dosage: (10 G 1X/5 DAYS SUBCUTANEOUS)
     Route: 058
     Dates: start: 20110101, end: 20120401
  6. HIZENTRA [Suspect]
     Indication: SELECTIVE IGA IMMUNODEFICIENCY
     Dosage: (10 G 1X/5 DAYS SUBCUTANEOUS)
     Route: 058
     Dates: start: 20110101, end: 20120401
  7. ACYCLOVIR [Concomitant]
  8. FLOVENT [Concomitant]

REACTIONS (8)
  - HEADACHE [None]
  - DRUG INEFFECTIVE [None]
  - RESPIRATORY DISTRESS [None]
  - NAUSEA [None]
  - LUNG NEOPLASM [None]
  - SPLENOMEGALY [None]
  - PLATELET COUNT DECREASED [None]
  - LEUKOPENIA [None]
